FAERS Safety Report 21673064 (Version 3)
Quarter: 2023Q2

REPORT INFORMATION
  Report Type: Report from Study
  Country: EG (occurrence: EG)
  Receive Date: 20221202
  Receipt Date: 20230605
  Transmission Date: 20230722
  Serious: Yes (Life-Threatening, Other)
  Sender: FDA-Public Use
  Company Number: EG-002147023-NVSC2022EG278558

PATIENT
  Sex: Female

DRUGS (10)
  1. KISQALI [Suspect]
     Active Substance: RIBOCICLIB
     Indication: Breast cancer metastatic
     Dosage: 600 MG, QD (3 TABLETS FOR 21 DAYS AND 1 WEEK OFF)
     Route: 048
     Dates: start: 202009
  2. KISQALI [Suspect]
     Active Substance: RIBOCICLIB
     Indication: Metastases to bone
  3. KISQALI [Suspect]
     Active Substance: RIBOCICLIB
     Indication: Metastases to liver
  4. FEMARA [Concomitant]
     Active Substance: LETROZOLE
     Indication: Product used for unknown indication
     Dosage: 1 DOSAGE FORM, QD
     Route: 065
     Dates: start: 202009
  5. ZOLADEX [Concomitant]
     Active Substance: GOSERELIN ACETATE
     Indication: Menstruation irregular
     Dosage: 1 DOSAGE FORM, QMO (3.6)
     Route: 065
     Dates: start: 202009
  6. ZOMETA [Concomitant]
     Active Substance: ZOLEDRONIC ACID
     Indication: Bone disorder
     Dosage: UNK (THE PATIENT STARTED WITH VIAL EVERY MONTH THEN EVERY 3 MONTHS THEN NOW EVERY 6 MONTHS)
     Route: 065
     Dates: start: 202009
  7. CALCIUM [Concomitant]
     Active Substance: CALCIUM
     Indication: Bone disorder
     Dosage: 2 DOSAGE FORM, Q2W (AFTER ZOMETA SESSION DOSE)
     Route: 065
     Dates: start: 202009
  8. CALCIUM [Concomitant]
     Active Substance: CALCIUM
     Dosage: 1 DOSAGE FORM, Q2W (UNTIL THE NEXT DOSE OF ZOMETA )
     Route: 065
     Dates: start: 202209
  9. HEPAFORTE [Concomitant]
     Indication: Liver disorder
     Dosage: 2 DOSAGE FORM, QD (2 TABLETS DAILY)
     Route: 065
     Dates: start: 202004
  10. URSODIOL [Concomitant]
     Active Substance: URSODIOL
     Indication: Liver disorder
     Dosage: 2 DOSAGE FORM, QD (2 TABLETS DAILY)
     Route: 065
     Dates: start: 202005

REACTIONS (8)
  - Feeling abnormal [Not Recovered/Not Resolved]
  - Renal impairment [Unknown]
  - White blood cell count decreased [Not Recovered/Not Resolved]
  - Blood urea increased [Unknown]
  - Hepatic enzyme increased [Unknown]
  - Neutrophil count decreased [Unknown]
  - Anaemia [Unknown]
  - Fatigue [Not Recovered/Not Resolved]
